FAERS Safety Report 6851013-1 (Version None)
Quarter: 2010Q3

REPORT INFORMATION
  Report Type: 
  Country: None (occurrence: None)
  Receive Date: 20100716
  Receipt Date: 20071025
  Transmission Date: 20110219
  Serious: No
  Sender: FDA-Public Use
  Company Number: US-PFIZER INC-2007091282

PATIENT
  Sex: Male
  Weight: 81.6 kg

DRUGS (6)
  1. CHANTIX [Suspect]
     Indication: SMOKING CESSATION THERAPY
     Dates: start: 20071022
  2. ELAVIL [Concomitant]
     Indication: FIBROMYALGIA
  3. KLONOPIN [Concomitant]
     Indication: BIPOLAR DISORDER
  4. LITHIUM [Concomitant]
     Indication: BIPOLAR DISORDER
  5. EFFEXOR [Concomitant]
     Indication: BIPOLAR DISORDER
  6. ALLEGRA [Concomitant]
     Indication: HYPERSENSITIVITY

REACTIONS (1)
  - MUSCULOSKELETAL STIFFNESS [None]
